FAERS Safety Report 10023778 (Version 4)
Quarter: 2014Q4

REPORT INFORMATION
  Report Type: Spontaneous
  Country: US (occurrence: None)
  Receive Date: 20140114
  Receipt Date: 20141113
  Transmission Date: 20150528
  Serious: Yes (Other)
  Sender: FDA-Public Use
  Company Number: ADR-2013-02315

PATIENT
  Age: 68 Year
  Sex: Male

DRUGS (11)
  1. LIORESAL [Suspect]
     Active Substance: BACLOFEN
     Indication: MUSCLE SPASTICITY
     Dates: start: 20101118
  2. METFORMIN [Concomitant]
     Active Substance: METFORMIN HYDROCHLORIDE
  3. QUINAPRIL [Concomitant]
     Active Substance: QUINAPRIL\QUINAPRIL HYDROCHLORIDE
  4. KLOR-CON [Concomitant]
     Active Substance: POTASSIUM CHLORIDE
  5. BUPIVACAINE [Suspect]
     Active Substance: BUPIVACAINE
     Indication: MUSCLE SPASTICITY
     Dosage: 0.50001 MG/DAY
  6. FUROSIMIDE [Concomitant]
     Active Substance: FUROSEMIDE
  7. GABAPENTIN. [Concomitant]
     Active Substance: GABAPENTIN
  8. PRADAXA [Concomitant]
     Active Substance: DABIGATRAN ETEXILATE MESYLATE
  9. SIMVASTATIN. [Concomitant]
     Active Substance: SIMVASTATIN
  10. DILTIAZEM [Concomitant]
     Active Substance: DILTIAZEM
  11. METROPOLOL [Concomitant]
     Active Substance: METOPROLOL

REACTIONS (10)
  - Muscle spasms [None]
  - Musculoskeletal stiffness [None]
  - Device malfunction [None]
  - Drug effect decreased [None]
  - Pruritus [None]
  - Device failure [None]
  - Muscle spasticity [None]
  - Condition aggravated [None]
  - Neuropathy peripheral [None]
  - Device alarm issue [None]

NARRATIVE: CASE EVENT DATE: 20131210
